FAERS Safety Report 16836945 (Version 2)
Quarter: 2019Q3

REPORT INFORMATION
  Report Type: Report from Study
  Country: None (occurrence: US)
  Receive Date: 20190923
  Receipt Date: 20190926
  Transmission Date: 20191005
  Serious: Yes (Other)
  Sender: FDA-Public Use
  Company Number: US-ABBVIE-19K-163-2933365-00

PATIENT
  Sex: Female

DRUGS (1)
  1. HUMIRA [Suspect]
     Active Substance: ADALIMUMAB
     Indication: RHEUMATOID ARTHRITIS
     Dosage: CITRATE FREE (CF)
     Route: 058

REACTIONS (4)
  - Retinal tear [Recovering/Resolving]
  - Macular hole [Recovering/Resolving]
  - Post-traumatic headache [Unknown]
  - Head injury [Not Recovered/Not Resolved]
